APPROVED DRUG PRODUCT: DIAZEPAM
Active Ingredient: DIAZEPAM
Strength: 5MG/ML
Dosage Form/Route: CONCENTRATE;ORAL
Application: A204433 | Product #001 | TE Code: AA
Applicant: CHARTWELL MOLECULAR HOLDINGS LLC
Approved: Apr 14, 2014 | RLD: No | RS: No | Type: RX